FAERS Safety Report 24911441 (Version 1)
Quarter: 2025Q1

REPORT INFORMATION
  Report Type: Spontaneous
  Country: JP (occurrence: JP)
  Receive Date: 20250131
  Receipt Date: 20250131
  Transmission Date: 20250409
  Serious: Yes (Hospitalization, Other)
  Sender: OTSUKA
  Company Number: JP-OTSUKA-2025_002228

PATIENT
  Sex: Male

DRUGS (1)
  1. REXULTI [Suspect]
     Active Substance: BREXPIPRAZOLE
     Indication: Dementia Alzheimer^s type
     Route: 048
     Dates: start: 202412

REACTIONS (1)
  - Pneumonia aspiration [Recovering/Resolving]

NARRATIVE: CASE EVENT DATE: 20241201
